FAERS Safety Report 10577973 (Version 1)
Quarter: 2014Q4

REPORT INFORMATION
  Report Type: Spontaneous
  Country: FR (occurrence: FR)
  Receive Date: 20141112
  Receipt Date: 20141112
  Transmission Date: 20150529
  Serious: Yes (Hospitalization)
  Sender: FDA-Public Use
  Company Number: FR-009507513-1411FRA000028

PATIENT
  Age: 65 Year
  Sex: Female

DRUGS (3)
  1. STROMECTOL [Suspect]
     Active Substance: IVERMECTIN
     Indication: ACARODERMATITIS
     Dosage: 3 DF IN ONE COURSE
     Route: 048
     Dates: start: 20140818, end: 20140827
  2. PYOSTACINE [Suspect]
     Active Substance: PRISTINAMYCIN
     Dosage: 2 DF, TID
     Route: 048
     Dates: start: 20140820, end: 20140825
  3. MABTHERA [Suspect]
     Active Substance: RITUXIMAB
     Indication: LYMPHOMA
     Dosage: CYCLE 5 TH
     Route: 041
     Dates: start: 20140807, end: 20140807

REACTIONS (1)
  - Agranulocytosis [Recovered/Resolved]

NARRATIVE: CASE EVENT DATE: 20140902
